FAERS Safety Report 16507325 (Version 2)
Quarter: 2019Q3

REPORT INFORMATION
  Report Type: Spontaneous
  Country: JP (occurrence: JP)
  Receive Date: 20190701
  Receipt Date: 20190708
  Transmission Date: 20191004
  Serious: No
  Sender: FDA-Public Use
  Company Number: JP-GILEAD-2019-0415227

PATIENT
  Age: 77 Year
  Sex: Male

DRUGS (14)
  1. HARVONI [Suspect]
     Active Substance: LEDIPASVIR\SOFOSBUVIR
     Indication: PRODUCT USED FOR UNKNOWN INDICATION
     Dosage: UNK, AFTER BREAKFAST
     Route: 048
     Dates: start: 20190623
  2. CARNACULIN [KALLIDINOGENASE] [Concomitant]
     Dosage: 50 UNITS
  3. NAPAGELN [Concomitant]
     Active Substance: FELBINAC
  4. PYDOXAL [Concomitant]
     Active Substance: PYRIDOXAL
     Dosage: 30 MG
  5. AZILVA [Concomitant]
     Active Substance: AZILSARTAN KAMEDOXOMIL
     Dosage: 40 MG
  6. FEXOFENADINE HYDROCHLORIDE. [Concomitant]
     Active Substance: FEXOFENADINE HYDROCHLORIDE
     Dosage: 60 MG
  7. SENNA [Concomitant]
     Active Substance: SENNA LEAF\SENNOSIDES\SENNOSIDES A AND B
  8. VOLTAREN ACTI [Concomitant]
     Active Substance: DICLOFENAC POTASSIUM
  9. JUVELA N [Concomitant]
     Active Substance: TOCOPHERYL NICOTINATE, D-.ALPHA.
     Dosage: 200 MG
  10. FAD [ALPRAZOLAM] [Concomitant]
     Dosage: 10 MG
  11. ZEPOLAS [Concomitant]
     Dosage: 40 MG
  12. BACTRAMIN [Concomitant]
     Active Substance: SULFAMETHOXAZOLE\TRIMETHOPRIM
  13. METHYCOBAL [Concomitant]
     Active Substance: METHYLCOBALAMIN
     Dosage: 500 UG
  14. RINDERON VG [Concomitant]
     Active Substance: BETAMETHASONE VALERATE\GENTAMICIN SULFATE

REACTIONS (1)
  - Cystitis [Recovered/Resolved]
